APPROVED DRUG PRODUCT: PIOGLITAZONE HYDROCHLORIDE
Active Ingredient: PIOGLITAZONE HYDROCHLORIDE
Strength: EQ 15MG BASE
Dosage Form/Route: TABLET;ORAL
Application: A078472 | Product #001
Applicant: PHARMOBEDIENT CONSULTING LLC
Approved: Feb 13, 2013 | RLD: No | RS: No | Type: DISCN